FAERS Safety Report 12008970 (Version 1)
Quarter: 2016Q1

REPORT INFORMATION
  Report Type: Report from Study
  Country: US (occurrence: US)
  Receive Date: 20160205
  Receipt Date: 20160205
  Transmission Date: 20160526
  Serious: No
  Sender: FDA-Public Use
  Company Number: US-ABBVIE-15K-163-1444528-00

PATIENT
  Age: 74 Year
  Sex: Female
  Weight: 52.21 kg

DRUGS (3)
  1. HUMIRA [Suspect]
     Active Substance: ADALIMUMAB
     Indication: RHEUMATOID ARTHRITIS
  2. HUMIRA [Suspect]
     Active Substance: ADALIMUMAB
     Indication: COLITIS ULCERATIVE
     Route: 058
     Dates: start: 201507
  3. DIOVAN [Concomitant]
     Active Substance: VALSARTAN
     Indication: MITRAL VALVE PROLAPSE

REACTIONS (1)
  - Injection site erythema [Recovering/Resolving]

NARRATIVE: CASE EVENT DATE: 20150808
